FAERS Safety Report 6259420-5 (Version None)
Quarter: 2009Q3

REPORT INFORMATION
  Report Type: 
  Country: None (occurrence: None)
  Receive Date: 20090706
  Receipt Date: 20090627
  Transmission Date: 20100115
  Serious: Yes (Other)
  Sender: FDA-Public Use
  Company Number: CHPA2009US14317

PATIENT
  Age: 75 Year
  Sex: Female

DRUGS (4)
  1. GAS-X EXTRA STRENGTH SOFTGELS (NCH) (SIMETHICONE) SOFT GELATIN CAPSULE [Suspect]
     Indication: FLATULENCE
     Dosage: 250 MG, QD, ORAL
     Route: 048
  2. GLYBURIDE [Concomitant]
  3. LISINOPRIL [Concomitant]
  4. CARDIZEM [Concomitant]

REACTIONS (1)
  - TYPE 2 DIABETES MELLITUS [None]
